FAERS Safety Report 22244250 (Version 1)
Quarter: 2023Q2

REPORT INFORMATION
  Report Type: Spontaneous
  Country: US (occurrence: None)
  Receive Date: 20230420
  Receipt Date: 20230420
  Transmission Date: 20230721
  Serious: Yes (Death)
  Sender: FDA-Public Use
  Company Number: None

PATIENT
  Age: 93 Year
  Sex: Male

DRUGS (1)
  1. PROLIA [Suspect]
     Active Substance: DENOSUMAB
     Dosage: 60MG EVERY 6 MO SUBQ
     Route: 058
     Dates: start: 20210613

REACTIONS (1)
  - Death [None]

NARRATIVE: CASE EVENT DATE: 20230420
